FAERS Safety Report 5241443-6 (Version None)
Quarter: 2007Q1

REPORT INFORMATION
  Report Type: 
  Country: None (occurrence: None)
  Receive Date: 20070212
  Receipt Date: 20070131
  Transmission Date: 20070707
  Serious: Yes (Hospitalization)
  Sender: FDA-Public Use
  Company Number: 2007SP002038

PATIENT
  Age: 43 Year
  Sex: Female
  Weight: 100.6985 kg

DRUGS (4)
  1. PEG-INTRON [Suspect]
     Indication: HEPATITIS C
     Dosage: 0.48 ML
     Dates: start: 20041013, end: 20050216
  2. REBETOL [Suspect]
     Indication: HEPATITIS C
     Dosage: 1200 MG; PO
     Route: 048
     Dates: start: 20041013, end: 20050216
  3. ALBUTEROL [Concomitant]
  4. ESTROGENS [Concomitant]

REACTIONS (3)
  - BLOOD URIC ACID INCREASED [None]
  - CHOLELITHIASIS [None]
  - DRUG INEFFECTIVE [None]
